FAERS Safety Report 6864773-0 (Version None)
Quarter: 2010Q3

REPORT INFORMATION
  Report Type: 
  Country: None (occurrence: None)
  Receive Date: 20100721
  Receipt Date: 20080530
  Transmission Date: 20110219
  Serious: No
  Sender: FDA-Public Use
  Company Number: US-PFIZER INC-2008030756

PATIENT
  Sex: Male
  Weight: 122.7 kg

DRUGS (14)
  1. CHANTIX [Suspect]
     Indication: SMOKING CESSATION THERAPY
     Dates: start: 20080201, end: 20080301
  2. LISINOPRIL [Concomitant]
  3. POTASSIUM CHLORIDE [Concomitant]
  4. FUROSEMIDE [Concomitant]
  5. SPIRONOLACTONE [Concomitant]
  6. LEVOXYL [Concomitant]
  7. ZOLOFT [Concomitant]
  8. TRICOR [Concomitant]
  9. LIPITOR [Concomitant]
  10. PREDNISOLONE [Concomitant]
  11. VICODIN [Concomitant]
  12. IPRATROPIUM [Concomitant]
  13. DRUG, UNSPECIFIED [Concomitant]
  14. PULMICORT [Concomitant]

REACTIONS (6)
  - CONSTIPATION [None]
  - INSOMNIA [None]
  - MALAISE [None]
  - MUSCLE STRAIN [None]
  - MYALGIA [None]
  - PAIN [None]
